FAERS Safety Report 8531320 (Version 6)
Quarter: 2012Q4

REPORT INFORMATION
  Report Type: Report from Study
  Country: JP (occurrence: JP)
  Receive Date: 20120426
  Receipt Date: 20121101
  Transmission Date: 20130627
  Serious: Yes (Other)
  Sender: FDA-Public Use
  Company Number: JP-JNJFOC-20120410300

PATIENT
  Age: 56 Year
  Sex: Female
  Weight: 65 kg

DRUGS (18)
  1. GOLIMUMAB [Suspect]
     Indication: RHEUMATOID ARTHRITIS
     Route: 058
     Dates: start: 20120704
  2. GOLIMUMAB [Suspect]
     Indication: RHEUMATOID ARTHRITIS
     Route: 058
     Dates: start: 20120801
  3. GOLIMUMAB [Suspect]
     Indication: RHEUMATOID ARTHRITIS
     Route: 058
     Dates: start: 20120509
  4. GOLIMUMAB [Suspect]
     Indication: RHEUMATOID ARTHRITIS
     Route: 058
     Dates: start: 20120411
  5. GOLIMUMAB [Suspect]
     Indication: RHEUMATOID ARTHRITIS
     Route: 058
     Dates: start: 20120314
  6. GOLIMUMAB [Suspect]
     Indication: RHEUMATOID ARTHRITIS
     Route: 058
     Dates: start: 20120215
  7. GOLIMUMAB [Suspect]
     Indication: RHEUMATOID ARTHRITIS
     Route: 058
     Dates: start: 20120118
  8. GOLIMUMAB [Suspect]
     Indication: RHEUMATOID ARTHRITIS
     Route: 058
     Dates: start: 20120606
  9. TACROLIMUS HYDRATE [Suspect]
     Indication: RHEUMATOID ARTHRITIS
     Dates: start: 20090609
  10. SALAZOSULFAPYRIDINE [Concomitant]
     Indication: RHEUMATOID ARTHRITIS
     Dates: start: 20001115
  11. DIGOXIN [Concomitant]
     Route: 065
  12. WARFARIN [Concomitant]
     Route: 048
  13. ISOSORBIDE DINITRATE [Concomitant]
     Route: 061
  14. CLINDAMYCIN [Concomitant]
     Indication: ACUTE SINUSITIS
  15. METHOTREXATE [Concomitant]
  16. METHOTREXATE [Concomitant]
     Dates: start: 201206
  17. LIMETHASON [Concomitant]
     Route: 042
     Dates: start: 20120411, end: 20120606
  18. SUVENYL [Concomitant]
     Indication: RHEUMATOID ARTHRITIS
     Route: 014

REACTIONS (2)
  - N-terminal prohormone brain natriuretic peptide increased [Not Recovered/Not Resolved]
  - Acute sinusitis [Recovered/Resolved]
